FAERS Safety Report 24390565 (Version 2)
Quarter: 2024Q4

REPORT INFORMATION
  Report Type: Spontaneous
  Country: US (occurrence: US)
  Receive Date: 20241003
  Receipt Date: 20241011
  Transmission Date: 20250114
  Serious: Yes (Other)
  Sender: ABBVIE
  Company Number: US-ABBVIE-5946970

PATIENT
  Sex: Female
  Weight: 63.502 kg

DRUGS (21)
  1. HUMIRA [Suspect]
     Active Substance: ADALIMUMAB
     Indication: Rheumatoid arthritis
     Dosage: FORM STRENGTH: 40 MILLIGRAM
     Route: 058
     Dates: start: 20240712, end: 20240712
  2. HUMIRA [Suspect]
     Active Substance: ADALIMUMAB
     Dosage: FORM STRENGTH: 40 MILLIGRAM
     Route: 058
     Dates: start: 2022, end: 20240628
  3. salonpas patches [Concomitant]
     Indication: Pain
  4. PROPRANOLOL HYDROCHLORIDE [Concomitant]
     Active Substance: PROPRANOLOL HYDROCHLORIDE
     Indication: Cardiac disorder
  5. OXYCODONE [Concomitant]
     Active Substance: OXYCODONE
     Indication: Pain
     Dosage: FREQUENCY TEXT: AS NEEDED
  6. GABAPENTIN [Concomitant]
     Active Substance: GABAPENTIN
     Indication: Complex regional pain syndrome
  7. OZEMPIC [Concomitant]
     Active Substance: SEMAGLUTIDE
     Indication: Weight decreased
  8. CEVIMELINE [Concomitant]
     Active Substance: CEVIMELINE
     Indication: Sjogren^s syndrome
  9. TYMLOS [Concomitant]
     Active Substance: ABALOPARATIDE
     Indication: Bone density abnormal
  10. SUCRALFATE [Concomitant]
     Active Substance: SUCRALFATE
     Indication: Product used for unknown indication
  11. VITAMIN D2 [Concomitant]
     Active Substance: ERGOCALCIFEROL
     Indication: Vitamin supplementation
  12. PREGNENOLONE [Concomitant]
     Active Substance: PREGNENOLONE
     Indication: Hormone replacement therapy
  13. TRAZODONE [Concomitant]
     Active Substance: TRAZODONE HYDROCHLORIDE
     Indication: Complex regional pain syndrome
  14. VITAMIN D3 [Concomitant]
     Active Substance: CHOLECALCIFEROL
     Indication: Vitamin supplementation
  15. LANSOPRAZOLE [Concomitant]
     Active Substance: LANSOPRAZOLE
     Indication: Gastrooesophageal reflux disease
  16. HYDROXYCHLOROQUINE [Concomitant]
     Active Substance: HYDROXYCHLOROQUINE
     Indication: Polymyalgia rheumatica
  17. BORON [Concomitant]
     Active Substance: BORON
     Indication: Mineral supplementation
  18. MAGNESIUM CITRATE [Concomitant]
     Active Substance: MAGNESIUM CITRATE
     Indication: Mineral supplementation
  19. LEVOMEFOLATE CALCIUM [Concomitant]
     Active Substance: LEVOMEFOLATE CALCIUM
     Indication: Product used for unknown indication
  20. fish oil with CoQ10 [Concomitant]
     Indication: Supplementation therapy
  21. LEVOTHYROXINE [Concomitant]
     Active Substance: LEVOTHYROXINE
     Indication: Hypothyroidism

REACTIONS (4)
  - Spinal stenosis [Unknown]
  - Back pain [Not Recovered/Not Resolved]
  - Pain in extremity [Not Recovered/Not Resolved]
  - Arthralgia [Recovering/Resolving]

NARRATIVE: CASE EVENT DATE: 20240101
